FAERS Safety Report 7209303-9 (Version None)
Quarter: 2011Q1

REPORT INFORMATION
  Report Type: 
  Country: None (occurrence: None)
  Receive Date: 20110104
  Receipt Date: 20101220
  Transmission Date: 20110831
  Serious: Yes (Death, Life-Threatening, Hospitalization, Other)
  Sender: FDA-Public Use
  Company Number: HU-BRISTOL-MYERS SQUIBB COMPANY-15440910

PATIENT
  Age: 60 Year
  Sex: Male

DRUGS (7)
  1. THEOPHYLLINE [Concomitant]
     Dosage: SLOW RELEASE
     Dates: start: 20101117
  2. ARIPIPRAZOLE [Suspect]
     Indication: SCHIZOPHRENIA
     Dosage: IM DEPOT QM RECEIVED 4 INF
     Route: 030
     Dates: start: 20100728, end: 20101130
  3. FUROSEMIDE [Concomitant]
     Dates: start: 20101117
  4. RAMIPRIL [Concomitant]
     Dates: start: 20101118
  5. AMOXICILLIN [Concomitant]
     Dates: start: 20101123, end: 20101129
  6. NEBIVOLOL [Concomitant]
     Dates: start: 20101118
  7. ALLOPURINOL [Concomitant]
     Dates: start: 20101126

REACTIONS (1)
  - CARDIAC ARREST [None]
